FAERS Safety Report 9337016 (Version 2)
Quarter: 2013Q3

REPORT INFORMATION
  Report Type: Spontaneous
  Country: JP (occurrence: JP)
  Receive Date: 20130607
  Receipt Date: 20130903
  Transmission Date: 20140515
  Serious: Yes (Hospitalization)
  Sender: FDA-Public Use
  Company Number: JP-BRACCO-007126

PATIENT
  Age: 45 Year
  Sex: Male
  Weight: 69 kg

DRUGS (4)
  1. KEPPRA [Suspect]
     Dates: start: 20130212
  2. TEGRETOL [Suspect]
     Route: 048
     Dates: start: 20130319
  3. KENALOG [Concomitant]
     Indication: ORAL PAIN
     Route: 003
     Dates: start: 201305
  4. PROHANCE [Suspect]
     Indication: NUCLEAR MAGNETIC RESONANCE IMAGING
     Route: 042
     Dates: start: 20130508, end: 20130508

REACTIONS (1)
  - Erythema [Recovering/Resolving]
